FAERS Safety Report 7356028-5 (Version None)
Quarter: 2011Q1

REPORT INFORMATION
  Report Type: 
  Country: None (occurrence: None)
  Receive Date: 20110310
  Receipt Date: 20110310
  Transmission Date: 20110831
  Serious: Yes (Other)
  Sender: FDA-Public Use
  Company Number: None

PATIENT
  Age: 74 Year
  Sex: Male
  Weight: 77.1115 kg

DRUGS (5)
  1. ACIPHEX [Concomitant]
  2. NAMENDA [Suspect]
     Indication: DEMENTIA
     Dosage: 10 MG TWICE DAILY PO
     Route: 048
     Dates: start: 20100927, end: 20101210
  3. LAMICAL [Concomitant]
  4. CELEBREX [Concomitant]
  5. TOPROL-XL [Concomitant]

REACTIONS (6)
  - SKIN DISCOLOURATION [None]
  - PAIN IN EXTREMITY [None]
  - DYSPNOEA [None]
  - GANGRENE [None]
  - TOE AMPUTATION [None]
  - OEDEMA PERIPHERAL [None]
